FAERS Safety Report 7005630-9 (Version None)
Quarter: 2010Q3

REPORT INFORMATION
  Report Type: 
  Country: None (occurrence: None)
  Receive Date: 20100921
  Receipt Date: 20100916
  Transmission Date: 20110219
  Serious: Yes (Hospitalization)
  Sender: FDA-Public Use
  Company Number: A0882139A

PATIENT
  Sex: Male

DRUGS (3)
  1. AVANDIA [Suspect]
     Dosage: 4MG TWICE PER DAY
     Route: 048
     Dates: start: 20070117, end: 20081204
  2. AVANDARYL [Suspect]
     Route: 048
     Dates: start: 20070117, end: 20081204
  3. GLIMEPIRIDE [Concomitant]

REACTIONS (4)
  - CARDIAC FAILURE [None]
  - CORONARY ARTERY BYPASS [None]
  - DEPRESSION [None]
  - PROCEDURAL COMPLICATION [None]
